FAERS Safety Report 4915062-2 (Version None)
Quarter: 2006Q1

REPORT INFORMATION
  Report Type: 
  Country: None (occurrence: None)
  Receive Date: 20060215
  Receipt Date: 20060215
  Transmission Date: 20060701
  Serious: Yes (Hospitalization)
  Sender: FDA-Public Use
  Company Number: None

PATIENT
  Age: 82 Year
  Sex: Male

DRUGS (3)
  1. VERAPAMIL [Suspect]
     Indication: ATRIAL FIBRILLATION
     Dosage: 240MG  DAILY  PO
     Route: 048
  2. TOPROL-XL [Suspect]
     Indication: ATRIAL FIBRILLATION
     Dosage: 25MG  BID  PO
     Route: 048
  3. TOPROL-XL [Suspect]
     Indication: HYPERTENSION
     Dosage: 25MG  BID  PO
     Route: 048

REACTIONS (2)
  - BRADYCARDIA [None]
  - HYPOTENSION [None]
